FAERS Safety Report 8844836 (Version 1)
Quarter: 2012Q4

REPORT INFORMATION
  Report Type: 
  Country: US (occurrence: US)
  Receive Date: 20121017
  Receipt Date: 20121017
  Transmission Date: 20130627
  Serious: Yes (Other)
  Sender: FDA-Public Use
  Company Number: US-PFIZER INC-2009196055

PATIENT
  Age: 65 Year
  Sex: Female
  Weight: 82 kg

DRUGS (11)
  1. PROVERA [Suspect]
     Indication: HORMONE REPLACEMENT THERAPY
     Dosage: UNK
     Route: 048
     Dates: start: 199801, end: 200109
  2. PROVERA [Suspect]
     Indication: MENOPAUSAL SYMPTOMS
  3. PREMARIN [Suspect]
     Indication: HORMONE REPLACEMENT THERAPY
     Dosage: UNK
     Dates: start: 1989, end: 200109
  4. PREMARIN [Suspect]
     Indication: MENOPAUSAL SYMPTOMS
  5. MEDROXYPROGESTERONE ACETATE [Suspect]
     Indication: HORMONE REPLACEMENT THERAPY
     Dosage: UNK
     Dates: start: 199801, end: 200109
  6. MEDROXYPROGESTERONE ACETATE [Suspect]
     Indication: MENOPAUSAL SYMPTOMS
  7. CYCRIN [Suspect]
     Indication: HORMONE REPLACEMENT THERAPY
     Dosage: UNK
     Dates: start: 1998, end: 2000
  8. SYNTHROID [Concomitant]
     Indication: THYROID DISORDER
     Dosage: UNK
     Dates: start: 1959
  9. NORVASC [Concomitant]
     Indication: HYPERTENSION
     Dosage: UNK
     Dates: start: 2000
  10. PRILOSEC [Concomitant]
     Indication: GASTROOESOPHAGEAL REFLUX DISEASE
     Dosage: UNK
     Dates: start: 2000
  11. ACETYLSALICYLIC ACID [Concomitant]
     Indication: EYE DISORDER
     Dosage: UNK
     Dates: start: 1998, end: 200503

REACTIONS (1)
  - Invasive ductal breast carcinoma [Unknown]
